FAERS Safety Report 4356312-3 (Version None)
Quarter: 2004Q2

REPORT INFORMATION
  Report Type: 
  Country: None (occurrence: None)
  Receive Date: 20040506
  Receipt Date: 20040223
  Transmission Date: 20050107
  Serious: Yes (Other)
  Sender: FDA-Public Use
  Company Number: 167-20785-04020672

PATIENT
  Sex: Male

DRUGS (2)
  1. THALIDOMIDE (THALIDOMIDE) (UNKNOWN) [Suspect]
     Indication: PROSTATE CANCER
     Dosage: 100 MG, QD
  2. NS HORMONE THERAPY [Concomitant]

REACTIONS (6)
  - CONSTIPATION [None]
  - DIZZINESS [None]
  - PERIPHERAL SENSORY NEUROPATHY [None]
  - RASH [None]
  - SOMNOLENCE [None]
  - URINARY RETENTION [None]
